FAERS Safety Report 17548015 (Version 7)
Quarter: 2021Q4

REPORT INFORMATION
  Report Type: Report from Study
  Country: None (occurrence: US)
  Receive Date: 20200316
  Receipt Date: 20211018
  Transmission Date: 20220303
  Serious: Yes (Hospitalization, Other)
  Sender: FDA-Public Use
  Company Number: US-ABBVIE-20K-163-3318436-00

PATIENT
  Age: 64 Year
  Sex: Male
  Weight: 59.02 kg

DRUGS (7)
  1. HUMIRA [Suspect]
     Active Substance: ADALIMUMAB
     Indication: Crohn^s disease
     Route: 058
     Dates: start: 20200304, end: 2020
  2. HUMIRA [Suspect]
     Active Substance: ADALIMUMAB
     Route: 058
     Dates: start: 20200401
  3. HUMIRA [Suspect]
     Active Substance: ADALIMUMAB
     Route: 058
  4. HUMIRA [Suspect]
     Active Substance: ADALIMUMAB
     Route: 058
  5. MYRBETRIQ [Concomitant]
     Active Substance: MIRABEGRON
     Indication: Product used for unknown indication
     Dates: start: 20200128
  6. PFIZER-BIONTECH COVID-19 VACCINE [Concomitant]
     Active Substance: TOZINAMERAN
     Indication: COVID-19 immunisation
     Dosage: 1ST DOSE
     Route: 030
     Dates: start: 20210116, end: 20210116
  7. PFIZER-BIONTECH COVID-19 VACCINE [Concomitant]
     Active Substance: TOZINAMERAN
     Dosage: 2ND DOSE
     Route: 030
     Dates: start: 20210206, end: 20210206

REACTIONS (15)
  - Fistula discharge [Recovering/Resolving]
  - Fistula inflammation [Recovering/Resolving]
  - Anal fissure haemorrhage [Not Recovered/Not Resolved]
  - Anal fissure [Recovering/Resolving]
  - Blood blister [Recovering/Resolving]
  - Blister rupture [Recovering/Resolving]
  - Perirectal abscess [Unknown]
  - Dysphonia [Not Recovered/Not Resolved]
  - Fistula [Not Recovered/Not Resolved]
  - Increased tendency to bruise [Not Recovered/Not Resolved]
  - Contusion [Not Recovered/Not Resolved]
  - Oral herpes [Recovering/Resolving]
  - Chest discomfort [Recovering/Resolving]
  - Unevaluable event [Unknown]
  - Pain [Not Recovered/Not Resolved]

NARRATIVE: CASE EVENT DATE: 20200101
